FAERS Safety Report 20091616 (Version 2)
Quarter: 2021Q4

REPORT INFORMATION
  Report Type: Spontaneous
  Country: US (occurrence: None)
  Receive Date: 20211119
  Receipt Date: 20211122
  Transmission Date: 20220303
  Serious: Yes (Hospitalization, Other)
  Sender: FDA-Public Use
  Company Number: 2021A806985

PATIENT
  Age: 730 Month
  Sex: Female
  Weight: 81.6 kg

DRUGS (3)
  1. BYDUREON BCISE [Suspect]
     Active Substance: EXENATIDE
     Indication: Blood glucose
     Route: 058
  2. ALBUTEROL [Concomitant]
     Active Substance: ALBUTEROL
     Indication: Dyspnoea
     Dosage: UNKNOWN
     Route: 065
  3. SUGAR PILLS [Concomitant]
     Indication: Blood glucose
     Dosage: NOW TAKING 3 PILLS WITH THE BCISE SHOTS
     Route: 065

REACTIONS (12)
  - COVID-19 [Unknown]
  - Pneumonia [Recovered/Resolved]
  - Lung disorder [Not Recovered/Not Resolved]
  - Blood glucose increased [Not Recovered/Not Resolved]
  - Feeling abnormal [Unknown]
  - Vision blurred [Unknown]
  - Nervousness [Unknown]
  - Tremor [Unknown]
  - Dyskinesia [Not Recovered/Not Resolved]
  - Dizziness [Unknown]
  - Balance disorder [Unknown]
  - Weight decreased [Unknown]

NARRATIVE: CASE EVENT DATE: 20210801
